FAERS Safety Report 8559890-3 (Version None)
Quarter: 2012Q3

REPORT INFORMATION
  Report Type: 
  Country: None (occurrence: None)
  Receive Date: 20120802
  Receipt Date: 20120731
  Transmission Date: 20120928
  Serious: Yes (Life-Threatening, Hospitalization)
  Sender: FDA-Public Use
  Company Number: AU-BAYER-2012-077051

PATIENT
  Age: 29 Year
  Sex: Male

DRUGS (14)
  1. MYCOPHENOLATE MOFETIL [Concomitant]
     Indication: IMMUNOSUPPRESSION
  2. TRIMETHOPRIM + SULFAMETHOXAZOLE [Suspect]
  3. VORICONAZOLE [Suspect]
  4. CREON [AMYLASE,LIPASE,PANCREATIN,PROTEASE] [Concomitant]
     Indication: PANCREATIC INSUFFICIENCY
  5. MOXIFLOXACIN [Suspect]
  6. GANCICLOVIR [Suspect]
  7. BASILIXIMAB [Concomitant]
     Indication: IMMUNOSUPPRESSION
  8. METHYLPREDNISOLONE [Concomitant]
     Indication: IMMUNOSUPPRESSION
  9. AMIKACIN [Suspect]
  10. PIPERACILLIN AND TAZOBACTAM [Suspect]
  11. TACROLIMUS [Concomitant]
     Indication: IMMUNOSUPPRESSION
  12. CORTICOSTEROIDS [Concomitant]
  13. VANCOMYCIN [Suspect]
  14. INSULIN [Concomitant]
     Indication: DIABETES MELLITUS

REACTIONS (4)
  - HYPEROXALURIA [None]
  - CRYSTAL NEPHROPATHY [None]
  - RENAL FAILURE ACUTE [None]
  - RENAL TUBULAR NECROSIS [None]
